FAERS Safety Report 6641330-2 (Version None)
Quarter: 2010Q1

REPORT INFORMATION
  Report Type: 
  Country: None (occurrence: None)
  Receive Date: 20100318
  Receipt Date: 20100311
  Transmission Date: 20100710
  Serious: Yes (Life-Threatening, Hospitalization, Other)
  Sender: FDA-Public Use
  Company Number: DE-TYCO HEALTHCARE/MALLINCKRODT-T201000677

PATIENT
  Age: 85 Year
  Sex: Female
  Weight: 68 kg

DRUGS (2)
  1. PENNSAID [Suspect]
     Indication: HIP ARTHROPLASTY
     Dosage: 75 MG, BID
  2. METFORMIN HYDROCHLORIDE [Suspect]
     Dosage: 850 MG, TID

REACTIONS (4)
  - CARDIOPULMONARY FAILURE [None]
  - MULTI-ORGAN FAILURE [None]
  - RENAL FAILURE [None]
  - SYSTEMIC INFLAMMATORY RESPONSE SYNDROME [None]
